FAERS Safety Report 10165534 (Version 1)
Quarter: 2014Q2

REPORT INFORMATION
  Report Type: Spontaneous
  Country: US (occurrence: US)
  Receive Date: 20140510
  Receipt Date: 20140510
  Transmission Date: 20141212
  Serious: No
  Sender: FDA-Public Use
  Company Number: US-BRISTOL-MYERS SQUIBB COMPANY-19851971

PATIENT
  Age: 59 Year
  Sex: Male
  Weight: 111.56 kg

DRUGS (3)
  1. BYDUREON [Suspect]
     Indication: TYPE 2 DIABETES MELLITUS
     Route: 058
  2. BYETTA [Concomitant]
     Dosage: INTIALLY THERAPY STARTED WITH 10MCG/2/1DAY AND CHANGED TO 5MCG/2/1/DAY
     Route: 058
  3. VICTOZA [Concomitant]

REACTIONS (3)
  - Injection site haemorrhage [Unknown]
  - Injection site pain [Unknown]
  - Injection site swelling [Unknown]
